FAERS Safety Report 4788663-2 (Version None)
Quarter: 2005Q4

REPORT INFORMATION
  Report Type: 
  Country: None (occurrence: None)
  Receive Date: 20051005
  Receipt Date: 20050930
  Transmission Date: 20060501
  Serious: Yes (Other)
  Sender: FDA-Public Use
  Company Number: 001#2#2005-00264

PATIENT
  Sex: Female

DRUGS (2)
  1. ATMADISC MITE [Suspect]
     Dosage: 150MCG UNKNOWN
     Route: 055
  2. CROMOLYN SODIUM [Concomitant]
     Route: 055

REACTIONS (6)
  - DRUG DEPENDENCE [None]
  - HEADACHE [None]
  - HEART RATE INCREASED [None]
  - ILL-DEFINED DISORDER [None]
  - PRURITUS [None]
  - SKIN FISSURES [None]
